FAERS Safety Report 25775897 (Version 1)
Quarter: 2025Q3

REPORT INFORMATION
  Report Type: Other
  Country: GB (occurrence: GB)
  Receive Date: 20250909
  Receipt Date: 20250909
  Transmission Date: 20251020
  Serious: Yes (Life-Threatening, Other)
  Sender: GLENMARK
  Company Number: None

PATIENT

DRUGS (1)
  1. DICLOFENAC SODIUM [Suspect]
     Active Substance: DICLOFENAC SODIUM
     Indication: Pain
     Route: 065
     Dates: start: 20250824, end: 20250824

REACTIONS (3)
  - Asthma [Recovered/Resolved]
  - Medication error [Unknown]
  - Contraindicated product administered [Unknown]

NARRATIVE: CASE EVENT DATE: 20250824
